FAERS Safety Report 7568909-8 (Version None)
Quarter: 2011Q2

REPORT INFORMATION
  Report Type: 
  Country: None (occurrence: None)
  Receive Date: 20110623
  Receipt Date: 20110613
  Transmission Date: 20111010
  Serious: Yes (Hospitalization)
  Sender: FDA-Public Use
  Company Number: US-MPIJNJ-2011-02243

PATIENT
  Sex: Female
  Weight: 77.8 kg

DRUGS (2)
  1. VELCADE [Suspect]
     Dosage: UNK
  2. VELCADE [Suspect]
     Indication: MULTIPLE MYELOMA
     Dosage: 2.3 MG, UNK
     Route: 042
     Dates: start: 20110328, end: 20110513

REACTIONS (3)
  - PELVIC ABSCESS [None]
  - DIVERTICULITIS [None]
  - DIVERTICULAR PERFORATION [None]
